FAERS Safety Report 8077501-0 (Version None)
Quarter: 2012Q1

REPORT INFORMATION
  Report Type: 
  Country: None (occurrence: None)
  Receive Date: 20120127
  Receipt Date: 20120112
  Transmission Date: 20120608
  Serious: Yes (Hospitalization)
  Sender: FDA-Public Use
  Company Number: SE-AMGEN-SWECT2011068656

PATIENT
  Age: 30 Year
  Sex: Female

DRUGS (3)
  1. IMURAN [Concomitant]
  2. ENBREL [Suspect]
     Indication: RHEUMATOID ARTHRITIS
     Dosage: 50 MG, QWK
     Route: 058
     Dates: start: 20040506, end: 20050802
  3. ENBREL [Suspect]
     Dosage: 50 MG, WEEKLY
     Route: 058
     Dates: start: 20040506, end: 20050802

REACTIONS (5)
  - SYSTEMIC LUPUS ERYTHEMATOSUS [None]
  - DIARRHOEA [None]
  - PYREXIA [None]
  - LEUKOPENIA [None]
  - HEADACHE [None]
